FAERS Safety Report 15155786 (Version 1)
Quarter: 2018Q3

REPORT INFORMATION
  Report Type: Spontaneous
  Country: AU (occurrence: AU)
  Receive Date: 20180717
  Receipt Date: 20180717
  Transmission Date: 20181010
  Serious: Yes (Hospitalization)
  Sender: FDA-Public Use
  Company Number: AU-US WORLDMEDS, LLC-STA_00019037

PATIENT
  Age: 74 Year
  Sex: Male
  Weight: 74 kg

DRUGS (13)
  1. LEVODOPA/CARBIDOPA [Concomitant]
     Active Substance: CARBIDOPA\LEVODOPA
     Dosage: 100/25MG TDS
  2. ATORVASTATIN [Concomitant]
     Active Substance: ATORVASTATIN
  3. PARACETAMOL [Concomitant]
     Active Substance: ACETAMINOPHEN
  4. APOMORPHINE HYDROCHLORIDE [Suspect]
     Active Substance: APOMORPHINE HYDROCHLORIDE
     Indication: PRODUCT USED FOR UNKNOWN INDICATION
     Route: 058
     Dates: start: 2008, end: 20150520
  5. OMEPRAZOLE. [Concomitant]
     Active Substance: OMEPRAZOLE
  6. BISACODYL. [Concomitant]
     Active Substance: BISACODYL
     Dosage: 15MG NOCTE
  7. DONEPEZIL. [Concomitant]
     Active Substance: DONEPEZIL
     Dosage: 10MG MANE
  8. FELODIPINE. [Concomitant]
     Active Substance: FELODIPINE
  9. AMITRIPTYLINE [Concomitant]
     Active Substance: AMITRIPTYLINE
     Dosage: 10MG NOCTE
  10. ASPIRIN. [Concomitant]
     Active Substance: ASPIRIN
  11. RAMIPRIL. [Concomitant]
     Active Substance: RAMIPRIL
  12. FOLATE [Concomitant]
     Active Substance: FOLATE SODIUM
  13. DUTASTERIDE/TAMSULOSIN [Concomitant]
     Dosage: 500MCG/400MCG DAILY

REACTIONS (1)
  - Encephalopathy [Recovering/Resolving]

NARRATIVE: CASE EVENT DATE: 201606
